FAERS Safety Report 25829958 (Version 1)
Quarter: 2025Q3

REPORT INFORMATION
  Report Type: Spontaneous
  Country: US (occurrence: US)
  Receive Date: 20250922
  Receipt Date: 20250922
  Transmission Date: 20251021
  Serious: Yes (Hospitalization, Other)
  Sender: AMNEAL
  Company Number: US-AMNEAL PHARMACEUTICALS-2025-AMRX-03593

PATIENT
  Age: 54 Year
  Sex: Female

DRUGS (1)
  1. CAPECITABINE [Suspect]
     Active Substance: CAPECITABINE
     Indication: Breast cancer
     Route: 048

REACTIONS (6)
  - Neurotoxicity [Recovering/Resolving]
  - Unresponsive to stimuli [Recovering/Resolving]
  - Musculoskeletal stiffness [Recovering/Resolving]
  - Mental status changes [Recovering/Resolving]
  - Muscle rigidity [Recovering/Resolving]
  - Toxic leukoencephalopathy [Recovering/Resolving]
